FAERS Safety Report 14497635 (Version 1)
Quarter: 2020Q3

REPORT INFORMATION
  Report Type: Spontaneous
  Country: GB (occurrence: GB)
  Receive Date: 20180207
  Receipt Date: 20180207
  Transmission Date: 20201104
  Serious: Yes (Other)
  Sender: FDA-Public Use
  Company Number: GB-TEVA-2018-GB-854728

PATIENT
  Age: 63 Year
  Sex: Female

DRUGS (2)
  1. IBANDRONIC ACID. [Suspect]
     Active Substance: IBANDRONIC ACID
     Indication: PATHOLOGICAL FRACTURE
     Route: 065
     Dates: start: 20171107, end: 20171107
  2. IBANDRONIC ACID. [Suspect]
     Active Substance: IBANDRONIC ACID
     Indication: PATHOLOGICAL FRACTURE
     Route: 065
     Dates: start: 20170808, end: 20170808

REACTIONS (48)
  - Lip dry [Recovered/Resolved]
  - Hyperhidrosis [Recovered/Resolved]
  - Anxiety [Recovered/Resolved]
  - Glossodynia [Recovered/Resolved]
  - Dry mouth [Recovered/Resolved]
  - Foreign body sensation in eyes [Recovered/Resolved]
  - Chest pain [Recovered/Resolved]
  - Abnormal sensation in eye [Recovered/Resolved]
  - Nasopharyngitis [Recovered/Resolved]
  - Restless legs syndrome [Recovered/Resolved]
  - Back pain [Recovered/Resolved]
  - Night sweats [Recovered/Resolved]
  - Rhinorrhoea [Recovered/Resolved]
  - Breast pain [Recovered/Resolved]
  - Pain in extremity [Recovered/Resolved]
  - Oropharyngeal pain [Recovered/Resolved]
  - Peripheral swelling [Recovered/Resolved]
  - Musculoskeletal stiffness [Recovered/Resolved]
  - Feeling hot [Recovered/Resolved]
  - Sputum discoloured [Recovered/Resolved]
  - Dysphagia [Recovered/Resolved]
  - Muscle twitching [Recovered/Resolved]
  - Eye pain [Recovering/Resolving]
  - Pain of skin [Recovered/Resolved]
  - Chills [Recovered/Resolved]
  - Toothache [Recovered/Resolved]
  - Pain in jaw [Recovered/Resolved]
  - Asthenia [Recovered/Resolved]
  - Acne [Recovered/Resolved]
  - Nausea [Recovered/Resolved]
  - Epistaxis [Recovered/Resolved]
  - Dysgeusia [Recovered/Resolved]
  - Dyspepsia [Recovered/Resolved]
  - Dizziness [Recovered/Resolved]
  - Hypoaesthesia [Recovered/Resolved]
  - Vision blurred [Recovered/Resolved]
  - Oral candidiasis [Recovered/Resolved]
  - Crying [Recovered/Resolved]
  - Headache [Recovered/Resolved]
  - Groin pain [Recovered/Resolved]
  - Abdominal discomfort [Recovered/Resolved]
  - Myalgia [Recovered/Resolved]
  - Productive cough [Not Recovered/Not Resolved]
  - Pyrexia [Recovered/Resolved]
  - Paraesthesia [Recovered/Resolved]
  - Feeling abnormal [Recovered/Resolved]
  - Blood blister [Recovered/Resolved]
  - Dry eye [Recovered/Resolved]

NARRATIVE: CASE EVENT DATE: 20170809
